FAERS Safety Report 4290172-4 (Version None)
Quarter: 2004Q1

REPORT INFORMATION
  Report Type: 
  Country: None (occurrence: None)
  Receive Date: 20040209
  Receipt Date: 20040126
  Transmission Date: 20041129
  Serious: Yes (Hospitalization)
  Sender: FDA-Public Use
  Company Number: RENA-10875

PATIENT
  Age: 55 Year
  Sex: Female

DRUGS (2)
  1. RENAGEL [Suspect]
     Indication: HYPERPHOSPHATAEMIA
     Dosage: 11.2 G DAILY PO
     Route: 048
  2. RENAGEL [Suspect]
     Indication: HYPERPHOSPHATAEMIA
     Dosage: 1.6 G TID PO
     Route: 048
     Dates: start: 20030701

REACTIONS (2)
  - ATRIAL FIBRILLATION [None]
  - HYPERPHOSPHATAEMIA [None]
